FAERS Safety Report 5370047-X (Version None)
Quarter: 2007Q2

REPORT INFORMATION
  Report Type: 
  Country: None (occurrence: None)
  Receive Date: 20070626
  Receipt Date: 20070614
  Transmission Date: 20071010
  Serious: Yes (Hospitalization)
  Sender: FDA-Public Use
  Company Number: FR-JNJFOC-20070504256

PATIENT
  Age: 20 Year
  Sex: Female
  Weight: 38 kg

DRUGS (5)
  1. INFLIXIMAB [Suspect]
     Indication: CROHN'S DISEASE
     Route: 042
  2. PANTOPRAZOL [Concomitant]
     Indication: ABDOMINAL PAIN UPPER
  3. TRIMEBUTINE [Concomitant]
     Indication: ABDOMINAL PAIN
  4. TPN [Concomitant]
     Indication: MALNUTRITION
  5. ENOAPARINE [Concomitant]
     Indication: THROMBOSIS PROPHYLAXIS

REACTIONS (2)
  - INTESTINAL OBSTRUCTION [None]
  - SERUM SICKNESS [None]
